FAERS Safety Report 9758415 (Version 3)
Quarter: 2014Q1

REPORT INFORMATION
  Report Type: Spontaneous
  Country: FR (occurrence: FR)
  Receive Date: 20131216
  Receipt Date: 20140124
  Transmission Date: 20141002
  Serious: Yes (Hospitalization)
  Sender: FDA-Public Use
  Company Number: FR-JNJFOC-20131205607

PATIENT
  Age: 66 Year
  Sex: Male

DRUGS (8)
  1. XARELTO [Suspect]
     Indication: CEREBROVASCULAR ACCIDENT PROPHYLAXIS
     Route: 048
     Dates: start: 20131127, end: 20131205
  2. XARELTO [Suspect]
     Indication: ATRIAL FIBRILLATION
     Route: 048
     Dates: start: 20131127, end: 20131205
  3. FEBUXOSTAT [Concomitant]
     Route: 065
  4. COAPROVEL [Concomitant]
     Route: 065
  5. VICTOZA [Concomitant]
     Route: 065
  6. CARDENSIEL [Concomitant]
     Route: 065
  7. CRESTOR [Concomitant]
     Route: 065
  8. INEXIUM [Concomitant]
     Route: 065

REACTIONS (2)
  - Pruritus [Recovered/Resolved]
  - Urticaria [Recovered/Resolved]
